FAERS Safety Report 5683275-0 (Version None)
Quarter: 2008Q1

REPORT INFORMATION
  Report Type: 
  Country: None (occurrence: None)
  Receive Date: 20080327
  Receipt Date: 20080319
  Transmission Date: 20080703
  Serious: Yes (Hospitalization, Other)
  Sender: FDA-Public Use
  Company Number: BE-PFIZER INC-2008000394

PATIENT
  Sex: Male
  Weight: 15 kg

DRUGS (2)
  1. GENOTONORM [Suspect]
     Indication: SMALL FOR DATES BABY
     Route: 058
     Dates: start: 20010323, end: 20020327
  2. GENOTONORM [Suspect]
     Route: 058
     Dates: start: 20040421, end: 20071101

REACTIONS (1)
  - GASTRIC CANCER [None]
